FAERS Safety Report 4303629-4 (Version None)
Quarter: 2004Q1

REPORT INFORMATION
  Report Type: 
  Country: None (occurrence: None)
  Receive Date: 20040225
  Receipt Date: 20040205
  Transmission Date: 20041129
  Serious: Yes (Other)
  Sender: FDA-Public Use
  Company Number: PHNU2004DE00809

PATIENT
  Age: 78 Year
  Sex: Female

DRUGS (1)
  1. PROVAS COMP [Suspect]
     Dosage: 1 DF, QD
     Route: 048
     Dates: start: 20040124, end: 20040128

REACTIONS (5)
  - DISTURBANCE IN ATTENTION [None]
  - DIZZINESS [None]
  - DRUG INTOLERANCE [None]
  - FATIGUE [None]
  - INDIFFERENCE [None]
